FAERS Safety Report 19768863 (Version 1)
Quarter: 2021Q3

REPORT INFORMATION
  Report Type: Spontaneous
  Country: US (occurrence: US)
  Receive Date: 20210831
  Receipt Date: 20210831
  Transmission Date: 20211014
  Serious: Yes (Hospitalization, Other)
  Sender: FDA-Public Use
  Company Number: US-SA-2021SA286296

PATIENT
  Age: 74 Year
  Sex: Male

DRUGS (25)
  1. TYLENOL [Concomitant]
     Active Substance: ACETAMINOPHEN
  2. FUROSEMIDE. [Concomitant]
     Active Substance: FUROSEMIDE
  3. DUPIXENT [Suspect]
     Active Substance: DUPILUMAB
     Indication: DERMATITIS ATOPIC
     Dosage: 300 MG, QOW
     Route: 058
     Dates: start: 20170727
  4. FLONASE SENSIMIST ALLERGY RELIEF [Concomitant]
     Active Substance: FLUTICASONE FUROATE
  5. VESICARE [Concomitant]
     Active Substance: SOLIFENACIN SUCCINATE
  6. VITAMIN D3 [Concomitant]
     Active Substance: CHOLECALCIFEROL
  7. ASPIRINE [Concomitant]
     Active Substance: ASPIRIN
  8. POLYETHYLENE GLYCOL 3350. [Concomitant]
     Active Substance: POLYETHYLENE GLYCOL 3350
  9. METOPROLOL SUCCINATE. [Concomitant]
     Active Substance: METOPROLOL SUCCINATE
  10. OMEPRAZOLE. [Concomitant]
     Active Substance: OMEPRAZOLE
  11. METFORMIN HCL [Concomitant]
     Active Substance: METFORMIN HYDROCHLORIDE
  12. ATORVASTATIN CALCIUM. [Concomitant]
     Active Substance: ATORVASTATIN CALCIUM
  13. DUPIXENT [Suspect]
     Active Substance: DUPILUMAB
     Indication: DERMATITIS ALLERGIC
  14. DUPIXENT [Suspect]
     Active Substance: DUPILUMAB
     Indication: ILLNESS
  15. CILOSTAZOL. [Concomitant]
     Active Substance: CILOSTAZOL
  16. VENLAFAXINE HCL [Concomitant]
     Active Substance: VENLAFAXINE HYDROCHLORIDE
  17. SENNOSIDES. [Concomitant]
     Active Substance: SENNOSIDES
  18. FLUTICASONE PROPIONATE. [Concomitant]
     Active Substance: FLUTICASONE PROPIONATE
  19. VITAMIN B12 [VITAMIN B12 NOS] [Concomitant]
     Active Substance: CYANOCOBALAMIN
  20. TAMSULOSIN HCL [Concomitant]
     Active Substance: TAMSULOSIN HYDROCHLORIDE
  21. LISINOPRIL. [Concomitant]
     Active Substance: LISINOPRIL
  22. MELATONIN [Concomitant]
     Active Substance: MELATONIN
  23. PRESERVISION AREDS 2 [Concomitant]
     Active Substance: MINERALS\VITAMINS
  24. IMIQUIMOD. [Concomitant]
     Active Substance: IMIQUIMOD
  25. FLUOROURACIL. [Concomitant]
     Active Substance: FLUOROURACIL

REACTIONS (4)
  - Product use in unapproved indication [Unknown]
  - Renal failure [Unknown]
  - Diarrhoea [Unknown]
  - Pruritus [Unknown]

NARRATIVE: CASE EVENT DATE: 20170727
